FAERS Safety Report 6412008-5 (Version None)
Quarter: 2009Q4

REPORT INFORMATION
  Report Type: 
  Country: None (occurrence: None)
  Receive Date: 20091020
  Receipt Date: 20091014
  Transmission Date: 20100525
  Serious: Yes (Hospitalization, Other)
  Sender: FDA-Public Use
  Company Number: 2009SP029380

PATIENT
  Age: 79 Year
  Sex: Female
  Weight: 68.0396 kg

DRUGS (5)
  1. MIRALAX [Suspect]
     Indication: CONSTIPATION
     Dosage: PO
     Route: 048
     Dates: start: 20080101, end: 20090924
  2. MIRALAX [Suspect]
     Indication: DRUG USE FOR UNKNOWN INDICATION
     Dosage: PO
     Route: 048
     Dates: start: 20080101, end: 20090924
  3. PROTONIX [Concomitant]
  4. PREDNISONE TAB [Concomitant]
  5. ALBUTEROL [Concomitant]

REACTIONS (6)
  - DRUG INEFFECTIVE [None]
  - FLATULENCE [None]
  - INFLAMMATION [None]
  - MEDICATION ERROR [None]
  - OEDEMA PERIPHERAL [None]
  - PYREXIA [None]
